FAERS Safety Report 10588078 (Version 3)
Quarter: 2014Q4

REPORT INFORMATION
  Report Type: Spontaneous
  Country: RU (occurrence: RU)
  Receive Date: 20141117
  Receipt Date: 20141203
  Transmission Date: 20150529
  Serious: Yes (Other)
  Sender: FDA-Public Use
  Company Number: RU-SA-2014SA112406

PATIENT
  Sex: Female
  Weight: 63 kg

DRUGS (5)
  1. CLEXANE [Suspect]
     Active Substance: ENOXAPARIN SODIUM
     Indication: PROPHYLAXIS
     Route: 058
  2. CLEXANE [Suspect]
     Active Substance: ENOXAPARIN SODIUM
     Indication: PROPHYLAXIS
     Route: 058
     Dates: start: 20141110
  3. CLEXANE [Suspect]
     Active Substance: ENOXAPARIN SODIUM
     Indication: PROPHYLAXIS
     Route: 058
     Dates: start: 201407
  4. CLEXANE [Suspect]
     Active Substance: ENOXAPARIN SODIUM
     Indication: PROPHYLAXIS
     Dosage: DOSE: 0.4 MLML IN THE EVENING AND 0.2 ML IN THE MORNING
     Route: 058
     Dates: start: 201410, end: 20141109
  5. DUPHASTON [Concomitant]
     Active Substance: DYDROGESTERONE
     Route: 048

REACTIONS (3)
  - Gingival bleeding [Recovered/Resolved]
  - Exposure during pregnancy [Unknown]
  - Anisocytosis [Recovered/Resolved]

NARRATIVE: CASE EVENT DATE: 20140819
